FAERS Safety Report 9238707 (Version 2)
Quarter: 2013Q2

REPORT INFORMATION
  Report Type: Spontaneous
  Country: US (occurrence: US)
  Receive Date: 20130418
  Receipt Date: 20130520
  Transmission Date: 20140414
  Serious: Yes (Other)
  Sender: FDA-Public Use
  Company Number: US-FRI-1000044223

PATIENT
  Age: 82 Year
  Sex: Female

DRUGS (3)
  1. ARMOUR THYROID [Suspect]
     Indication: HYPOTHYROIDISM
     Dosage: 90 MG
     Route: 048
     Dates: start: 201212
  2. CITALOPRAM [Suspect]
     Dosage: 20 MG
     Route: 048
     Dates: start: 201212
  3. NORCO [Concomitant]
     Indication: BACK PAIN

REACTIONS (2)
  - Blood pressure increased [Recovered/Resolved]
  - Feeling hot [Recovered/Resolved]
